FAERS Safety Report 19722023 (Version 1)
Quarter: 2021Q3

REPORT INFORMATION
  Report Type: Spontaneous
  Country: CA (occurrence: CA)
  Receive Date: 20210818
  Receipt Date: 20210818
  Transmission Date: 20211014
  Serious: Yes (Other)
  Sender: FDA-Public Use
  Company Number: CA-JNJFOC-20210827097

PATIENT
  Age: 46 Year
  Sex: Female

DRUGS (2)
  1. INFLIXIMAB, RECOMBINANT [Suspect]
     Active Substance: INFLIXIMAB
     Indication: CROHN^S DISEASE
     Route: 042
  2. PREDNISONE. [Concomitant]
     Active Substance: PREDNISONE
     Route: 065

REACTIONS (7)
  - Constipation [Unknown]
  - Intentional product use issue [Unknown]
  - Arthralgia [Unknown]
  - Haemorrhage [Unknown]
  - Condition aggravated [Unknown]
  - Stress [Unknown]
  - Off label use [Unknown]
